FAERS Safety Report 12282105 (Version 1)
Quarter: 2016Q2

REPORT INFORMATION
  Report Type: Spontaneous
  Country: US (occurrence: US)
  Receive Date: 20160419
  Receipt Date: 20160419
  Transmission Date: 20160815
  Serious: No
  Sender: FDA-Public Use
  Company Number: US-PFIZER INC-2016208736

PATIENT
  Age: 78 Year
  Sex: Female

DRUGS (3)
  1. TOVIAZ [Suspect]
     Active Substance: FESOTERODINE FUMARATE
     Indication: BLADDER DISORDER
     Dosage: 8 MG, 1X/DAY
     Route: 048
     Dates: end: 20160410
  2. TOVIAZ [Suspect]
     Active Substance: FESOTERODINE FUMARATE
     Indication: INCONTINENCE
  3. LASIX [Concomitant]
     Active Substance: FUROSEMIDE
     Dosage: 40 MG, 1X/DAY

REACTIONS (8)
  - Swelling face [Recovering/Resolving]
  - Dry mouth [Not Recovered/Not Resolved]
  - Fluid retention [Not Recovered/Not Resolved]
  - Eye swelling [Recovering/Resolving]
  - Constipation [Not Recovered/Not Resolved]
  - Eyelid oedema [Recovering/Resolving]
  - Weight increased [Unknown]
  - Dry throat [Not Recovered/Not Resolved]
